FAERS Safety Report 23769705 (Version 2)
Quarter: 2024Q2

REPORT INFORMATION
  Report Type: Spontaneous
  Country: US (occurrence: US)
  Receive Date: 20240422
  Receipt Date: 20240530
  Transmission Date: 20240716
  Serious: Yes (Disabling)
  Sender: FDA-Public Use
  Company Number: US-AMGEN-USASP2024076269

PATIENT
  Age: 80 Year
  Sex: Female

DRUGS (3)
  1. REPATHA [Suspect]
     Active Substance: EVOLOCUMAB
     Indication: Blood cholesterol abnormal
     Dosage: 140 MILLIGRAM, Q2WK
     Route: 058
     Dates: start: 202210
  2. REPATHA [Suspect]
     Active Substance: EVOLOCUMAB
     Dosage: 140 MILLIGRAM, Q4WK
     Route: 058
     Dates: start: 202310
  3. CLONIDINE [Concomitant]
     Active Substance: CLONIDINE
     Indication: Blood pressure increased
     Dosage: UNK

REACTIONS (2)
  - Dyspepsia [Unknown]
  - Chest pain [Unknown]

NARRATIVE: CASE EVENT DATE: 20221001
